FAERS Safety Report 12849243 (Version 1)
Quarter: 2016Q4

REPORT INFORMATION
  Report Type: Report from Study
  Country: US (occurrence: US)
  Receive Date: 20161014
  Receipt Date: 20161014
  Transmission Date: 20170207
  Serious: Yes (Other)
  Sender: FDA-Public Use
  Company Number: US-BAXTER-2016BAX051812

PATIENT
  Age: 57 Year
  Sex: Female
  Weight: 106.69 kg

DRUGS (69)
  1. 0.9% SODIUM CHLORIDE INJECTION [Suspect]
     Active Substance: SODIUM CHLORIDE
     Indication: CATHETER MANAGEMENT
     Route: 042
     Dates: start: 20121109, end: 20121115
  2. BUMEX [Suspect]
     Active Substance: BUMETANIDE
     Dosage: 1 TABLET
     Route: 048
     Dates: start: 20121113, end: 20121115
  3. DIGOXIN. [Suspect]
     Active Substance: DIGOXIN
     Indication: PRODUCT USED FOR UNKNOWN INDICATION
     Dosage: 1 TABLET
     Route: 048
  4. SYNTHROID [Suspect]
     Active Substance: LEVOTHYROXINE SODIUM
     Indication: PRODUCT USED FOR UNKNOWN INDICATION
     Dosage: DAILY;SUBSTITUTION PERMITTED
     Route: 048
     Dates: start: 20121109
  5. ZOFRAN [Suspect]
     Active Substance: ONDANSETRON HYDROCHLORIDE
     Indication: VOMITING
     Dosage: 4MG/2ML;Q6 HOUR,PRN,
     Route: 042
     Dates: start: 20121109, end: 20121115
  6. SPIRONOLACTONE. [Suspect]
     Active Substance: SPIRONOLACTONE
     Dosage: 25 MG DAILY;0 REFILL(S) COMPLETED ON 19:36
     Route: 048
  7. ALLOPURINOL. [Suspect]
     Active Substance: ALLOPURINOL
     Indication: TUMOUR LYSIS SYNDROME
     Dosage: HS
     Route: 048
     Dates: start: 20121109
  8. RASBURICASE [Suspect]
     Active Substance: RASBURICASE
     Indication: CONDITION AGGRAVATED
  9. HUMULIN R [Concomitant]
     Active Substance: INSULIN HUMAN
     Dosage: 20UNITS/0.2ML; COOMPLETE ON 11/11/2012;12:06
     Route: 058
     Dates: start: 20121111, end: 20121111
  10. 0.9% SODIUM CHLORIDE INJECTION [Suspect]
     Active Substance: SODIUM CHLORIDE
     Indication: MEDICATION DILUTION
     Route: 042
     Dates: start: 20121109, end: 20121115
  11. RITUXAN [Suspect]
     Active Substance: RITUXIMAB
     Indication: CHRONIC LYMPHOCYTIC LEUKAEMIA
     Route: 042
     Dates: start: 20121110, end: 20121110
  12. BUMEX [Suspect]
     Active Substance: BUMETANIDE
     Indication: PRODUCT USED FOR UNKNOWN INDICATION
     Dosage: 2MG/8ML;2 EACH
     Route: 040
     Dates: start: 20121109, end: 20121111
  13. DIGOXIN. [Suspect]
     Active Substance: DIGOXIN
     Dosage: 1 TABLET
     Route: 048
     Dates: start: 20121109, end: 20121115
  14. CARDIZEM [Suspect]
     Active Substance: DILTIAZEM HYDROCHLORIDE
     Indication: PRODUCT USED FOR UNKNOWN INDICATION
     Dosage: 10MG/2ML;1 EACH; COMPLETE ON 09/11/2012:1:28)
     Route: 042
     Dates: start: 20121109, end: 20121109
  15. CARDIZEM [Suspect]
     Active Substance: DILTIAZEM HYDROCHLORIDE
     Dosage: 10MG/2ML, 1 EACH
     Route: 042
     Dates: start: 20121109, end: 20121109
  16. LOVENOX [Suspect]
     Active Substance: ENOXAPARIN SODIUM
     Dosage: 40MG/0.4ML/DAILY
     Route: 058
     Dates: start: 20121109, end: 20121110
  17. ZOFRAN [Suspect]
     Active Substance: ONDANSETRON HYDROCHLORIDE
     Indication: PRODUCT USED FOR UNKNOWN INDICATION
  18. MIRALAX [Suspect]
     Active Substance: POLYETHYLENE GLYCOL 3350
     Indication: CONSTIPATION
     Dosage: 17GM/POWDER, RECONSTITUTE,DAILY,PRN
     Route: 048
     Dates: start: 20121110, end: 20121115
  19. ALLOPURINOL. [Suspect]
     Active Substance: ALLOPURINOL
     Indication: CONDITION AGGRAVATED
     Dosage: ORDER:HS
     Route: 048
     Dates: start: 20121109
  20. SOLU-MEDROL [Suspect]
     Active Substance: METHYLPREDNISOLONE SODIUM SUCCINATE
     Indication: TUMOUR LYSIS SYNDROME
     Dosage: 40MG/ML
     Route: 042
     Dates: start: 20121111, end: 20121114
  21. SOLU-MEDROL [Suspect]
     Active Substance: METHYLPREDNISOLONE SODIUM SUCCINATE
     Indication: CONDITION AGGRAVATED
     Dosage: 60MG/0.96ML
     Route: 042
     Dates: start: 20121110, end: 20121111
  22. SOLU-MEDROL [Suspect]
     Active Substance: METHYLPREDNISOLONE SODIUM SUCCINATE
     Dosage: 80MG/1.28ML
     Route: 042
     Dates: start: 20121109, end: 20121110
  23. DETROL LA [Concomitant]
     Active Substance: TOLTERODINE TARTRATE
     Indication: PRODUCT USED FOR UNKNOWN INDICATION
     Dosage: 4MG DAILY,0 REFILL(S); COMPLETED ON 12 /11/2012 19:36
     Route: 048
  24. HUMALOG [Concomitant]
     Active Substance: INSULIN LISPRO
     Dosage: SC,AC;USE AS DIRECTED
     Route: 058
     Dates: start: 20121109, end: 20121115
  25. COUMADIN [Concomitant]
     Active Substance: WARFARIN SODIUM
     Indication: PRODUCT USED FOR UNKNOWN INDICATION
     Dosage: 2.5MG/DAILY
     Route: 048
     Dates: start: 20121114, end: 20121115
  26. INFLUENZA VIRUS VACCINE, INACTIVATED [Suspect]
     Active Substance: INFLUENZA VIRUS VACCINE
     Indication: PRODUCT USED FOR UNKNOWN INDICATION
     Dosage: QAM;COMPLETED ON 11/11/2012; 09:01
     Route: 029
     Dates: start: 20121110, end: 20121111
  27. SYNTHROID [Suspect]
     Active Substance: LEVOTHYROXINE SODIUM
     Dosage: DAILY
     Route: 048
     Dates: start: 20121223
  28. SYNTHROID [Suspect]
     Active Substance: LEVOTHYROXINE SODIUM
     Route: 048
     Dates: end: 20121224
  29. METOPROLOL. [Suspect]
     Active Substance: METOPROLOL
     Dosage: 100 MG EXTENDED RELEASE TABLETS EACH;ONCE
     Route: 048
     Dates: start: 20121109, end: 20121109
  30. METOPROLOL. [Suspect]
     Active Substance: METOPROLOL
     Dosage: 5MG/5ML, 1 EACH;ONCE;COMPLETE ON 09/11/2012
     Route: 042
     Dates: start: 20121109, end: 20121109
  31. SOLU-MEDROL [Suspect]
     Active Substance: METHYLPREDNISOLONE SODIUM SUCCINATE
     Dosage: 80MG/1.28ML;Q8 HOUR
     Route: 042
     Dates: start: 20121109, end: 20121110
  32. COUMADIN [Concomitant]
     Active Substance: WARFARIN SODIUM
     Dosage: 5 MG DAILY
     Route: 048
     Dates: start: 20121109, end: 20121114
  33. 0.9% SODIUM CHLORIDE INJECTION [Suspect]
     Active Substance: SODIUM CHLORIDE
     Dosage: COMPLETED;11-NOV-2012;10:34
     Route: 042
     Dates: start: 20121111, end: 20121111
  34. TYLENOL [Suspect]
     Active Substance: ACETAMINOPHEN
     Indication: PREMEDICATION
     Dosage: 2 TABLETS, MAXIMUM DOSE IS 4 GM IN 24 HR PERIOD
     Route: 048
     Dates: start: 20121109, end: 20121109
  35. SIMVASTATIN. [Suspect]
     Active Substance: SIMVASTATIN
     Indication: PRODUCT USED FOR UNKNOWN INDICATION
     Dosage: 20MG;HS
     Route: 048
     Dates: start: 20121109, end: 20121115
  36. SPIRONOLACTONE. [Suspect]
     Active Substance: SPIRONOLACTONE
     Indication: PRODUCT USED FOR UNKNOWN INDICATION
     Dosage: 25 MG DAILY;
     Route: 048
     Dates: start: 20121113, end: 20121115
  37. FLEXERIL [Suspect]
     Active Substance: CYCLOBENZAPRINE HYDROCHLORIDE
     Indication: MUSCLE SPASMS
     Dosage: Q12HR
     Route: 048
     Dates: start: 20121113, end: 20121115
  38. RASBURICASE [Suspect]
     Active Substance: RASBURICASE
     Indication: TUMOUR LYSIS SYNDROME
     Dosage: 50 ML IVPB, POWDER INJECTION;ONCE;COMPLETE ON 11/11/2012 10:34
     Route: 042
     Dates: start: 20121111, end: 20121111
  39. LANTUS [Concomitant]
     Active Substance: INSULIN GLARGINE
     Dosage: 60 ML/0.6ML;HS
     Route: 058
     Dates: start: 20121109, end: 20121110
  40. HUMULIN R [Concomitant]
     Active Substance: INSULIN HUMAN
     Dosage: 15UNITS/0.15ML;COMPLETE ON 11/11/2012;17:18
     Route: 058
     Dates: start: 20121111, end: 20121111
  41. 0.9% SODIUM CHLORIDE INJECTION [Suspect]
     Active Substance: SODIUM CHLORIDE
     Dosage: COMPLETED ON 11-NOV-2012;09:01
     Route: 042
     Dates: start: 20121110, end: 20121111
  42. 0.9% SODIUM CHLORIDE INJECTION [Suspect]
     Active Substance: SODIUM CHLORIDE
     Dosage: INFUSE OVER 10.5 HOURS
     Route: 042
     Dates: start: 20121110, end: 20121113
  43. 0.9% SODIUM CHLORIDE INJECTION [Suspect]
     Active Substance: SODIUM CHLORIDE
     Dosage: INFUSE OVER 40 HOURS
     Route: 042
     Dates: start: 20121113, end: 20121115
  44. CYTOXAN [Suspect]
     Active Substance: CYCLOPHOSPHAMIDE
     Indication: CHRONIC LYMPHOCYTIC LEUKAEMIA
     Route: 042
     Dates: start: 20121112, end: 20121112
  45. VINCRISTINE [Suspect]
     Active Substance: VINCRISTINE
     Indication: CHRONIC LYMPHOCYTIC LEUKAEMIA
     Dosage: VIA IVPB
     Route: 042
     Dates: start: 20121112, end: 20121112
  46. CARDIZEM [Suspect]
     Active Substance: DILTIAZEM HYDROCHLORIDE
     Dosage: 100MG/100ML 1 EACH,EVERY BAG;10ML/HR,INFUSE OVER 10 HR
     Route: 042
     Dates: start: 20121109, end: 20121109
  47. CYMBALTA [Suspect]
     Active Substance: DULOXETINE HYDROCHLORIDE
     Indication: PRODUCT USED FOR UNKNOWN INDICATION
     Dosage: 3 CAPSULES
     Route: 048
     Dates: start: 20121109, end: 20121115
  48. METOPROLOL. [Suspect]
     Active Substance: METOPROLOL
     Indication: PRODUCT USED FOR UNKNOWN INDICATION
     Dosage: EXTENDED RELEASE TABLETS ;DAILY;
     Route: 048
     Dates: start: 20121109, end: 20121115
  49. AMPHOJEL [Suspect]
     Active Substance: ALUMINUM HYDROXIDE
     Indication: TUMOUR LYSIS SYNDROME
     Dosage: 1920MG/30ML,EVERY 8 HRS, SUSPENSION
     Route: 048
     Dates: start: 20121111, end: 20121113
  50. LANTUS [Concomitant]
     Active Substance: INSULIN GLARGINE
     Indication: PRODUCT USED FOR UNKNOWN INDICATION
     Dosage: 75 UNITS/0.75ML;HS
     Route: 058
     Dates: start: 20121111, end: 20121115
  51. LANTUS [Concomitant]
     Active Substance: INSULIN GLARGINE
     Dosage: 65 UNITS/0.65 ML;HS;DAILY
     Route: 058
     Dates: start: 20121110, end: 20121111
  52. HUMALOG [Concomitant]
     Active Substance: INSULIN LISPRO
     Indication: PRODUCT USED FOR UNKNOWN INDICATION
     Dosage: USE AS DIRECTED;HS
     Route: 058
     Dates: start: 20121109, end: 20121115
  53. HUMULIN R [Concomitant]
     Active Substance: INSULIN HUMAN
     Indication: PRODUCT USED FOR UNKNOWN INDICATION
     Dosage: 15 UNITIS/0.15ML;ONCE;COMPLETE ON 15/11/2012;00:36
     Route: 058
     Dates: start: 20121114, end: 20121114
  54. HUMULIN R [Concomitant]
     Active Substance: INSULIN HUMAN
     Dosage: 15UNITS/0.15ML;STAT;COMPLETE ON 14/11/2012:16:45
     Route: 058
     Dates: start: 20121114, end: 20121114
  55. 0.9% SODIUM CHLORIDE INJECTION [Suspect]
     Active Substance: SODIUM CHLORIDE
     Dosage: 250ML/HR/AS REQUIRED
     Route: 042
     Dates: start: 20121109, end: 20121115
  56. 0.9% SODIUM CHLORIDE INJECTION [Suspect]
     Active Substance: SODIUM CHLORIDE
     Dosage: WITH CYCLOPHOSPHAMIDE
     Route: 042
     Dates: start: 20121112, end: 20121112
  57. TYLENOL [Suspect]
     Active Substance: ACETAMINOPHEN
     Dosage: 2 TABLETS, MAXIMUM DOSE IS 4 GM IN 24 HR PERIOD
     Route: 048
     Dates: start: 20121110, end: 20121110
  58. ZOFRAN [Suspect]
     Active Substance: ONDANSETRON HYDROCHLORIDE
     Indication: NAUSEA
     Dosage: 8MG/4ML;ON CALL MEDICATION;COMPLETE ON 12/11/2012;14:30
     Route: 042
     Dates: start: 20121112
  59. VALIUM [Suspect]
     Active Substance: DIAZEPAM
     Indication: RESTLESSNESS
  60. HUMULIN R [Concomitant]
     Active Substance: INSULIN HUMAN
     Dosage: 20UNITS/0.2ML;STAT,COMPLETE ON 14/11/2012;16:09
     Route: 058
     Dates: start: 20121114, end: 20121114
  61. HUMULIN R [Concomitant]
     Active Substance: INSULIN HUMAN
     Dosage: 15UNITS/0.15ML,STAT,COMPLETE ON 12/11/2012;17:18
     Route: 061
     Dates: start: 20121111, end: 20121111
  62. BUMEX [Suspect]
     Active Substance: BUMETANIDE
     Dosage: 1 TABLET
     Route: 048
     Dates: start: 20121109, end: 20130522
  63. BUMEX [Suspect]
     Active Substance: BUMETANIDE
     Dosage: 0.5 TABLET, COMPLETE:15/11/2012:11:43
     Route: 048
     Dates: start: 20121115, end: 20121115
  64. BENADRYL [Suspect]
     Active Substance: DIPHENHYDRAMINE HYDROCHLORIDE
     Indication: PREMEDICATION
     Dosage: 25MG/0.5ML
     Route: 042
     Dates: start: 20121110, end: 20121110
  65. LOVENOX [Suspect]
     Active Substance: ENOXAPARIN SODIUM
     Indication: PRODUCT USED FOR UNKNOWN INDICATION
     Dosage: 80MG/0.8ML/Q12 HOUR
     Route: 058
     Dates: start: 20121110, end: 20121112
  66. FOLIC ACID. [Suspect]
     Active Substance: FOLIC ACID
     Indication: PRODUCT USED FOR UNKNOWN INDICATION
     Dosage: DAILY
     Route: 048
     Dates: start: 20121111, end: 20121115
  67. VALIUM [Suspect]
     Active Substance: DIAZEPAM
     Indication: ANXIETY
     Dosage: 5 MG/ Q8HR,PRN
     Route: 048
     Dates: start: 20121110, end: 20121115
  68. TRAZODONE [Suspect]
     Active Substance: TRAZODONE HYDROCHLORIDE
     Indication: INSOMNIA
     Dosage: 100 MG,PRN
     Route: 048
     Dates: start: 20121109, end: 20121115
  69. AMPHOJEL [Suspect]
     Active Substance: ALUMINUM HYDROXIDE
     Indication: CONDITION AGGRAVATED

REACTIONS (2)
  - Condition aggravated [Recovered/Resolved]
  - Tumour lysis syndrome [Recovered/Resolved]

NARRATIVE: CASE EVENT DATE: 201211
